FAERS Safety Report 5302992-5 (Version None)
Quarter: 2007Q2

REPORT INFORMATION
  Report Type: 
  Country: None (occurrence: None)
  Receive Date: 20070417
  Receipt Date: 20070417
  Transmission Date: 20071010
  Serious: Yes (Death, Life-Threatening, Hospitalization)
  Sender: FDA-Public Use
  Company Number: None

PATIENT
  Age: 80 Year
  Sex: Female

DRUGS (10)
  1. NABUMETONE [Suspect]
  2. NAPROXEN [Suspect]
  3. METOPROLOL SUCCINATE [Concomitant]
  4. NITROFURANTOIN [Concomitant]
  5. TRIMETHOPRIM / HCTZ [Concomitant]
  6. NABUMETONE [Concomitant]
  7. NAPROXEN [Concomitant]
  8. LIBRIUM [Concomitant]
  9. AMLODIPINE [Concomitant]
  10. CIPROFLOXACIN [Concomitant]

REACTIONS (4)
  - FALL [None]
  - HYDROCEPHALUS [None]
  - INTRAVENTRICULAR HAEMORRHAGE [None]
  - THALAMUS HAEMORRHAGE [None]
